FAERS Safety Report 9709708 (Version 1)
Quarter: 2013Q4

REPORT INFORMATION
  Report Type: Report from Study
  Country: CA (occurrence: CA)
  Receive Date: 20131126
  Receipt Date: 20131126
  Transmission Date: 20140711
  Serious: Yes (Hospitalization)
  Sender: FDA-Public Use
  Company Number: CA-JNJFOC-20131113103

PATIENT
  Sex: Male

DRUGS (5)
  1. REMICADE [Suspect]
     Indication: COLITIS ULCERATIVE
     Route: 042
     Dates: start: 20130926
  2. REMICADE [Suspect]
     Indication: COLITIS ULCERATIVE
     Route: 042
     Dates: start: 20070716
  3. IMURAN [Concomitant]
     Route: 065
  4. LUMIGAN [Concomitant]
     Route: 065
  5. CODEINE [Concomitant]
     Route: 065

REACTIONS (1)
  - Crohn^s disease [Unknown]
